FAERS Safety Report 9088190 (Version 1)
Quarter: 2013Q1

REPORT INFORMATION
  Report Type: Report from Study
  Country: US (occurrence: US)
  Receive Date: 20130201
  Receipt Date: 20130201
  Transmission Date: 20140127
  Serious: No
  Sender: FDA-Public Use
  Company Number: US-ABBOTT-12P-163-1025860-00

PATIENT
  Sex: Female
  Weight: 81.72 kg

DRUGS (2)
  1. HUMIRA [Suspect]
     Indication: PSORIATIC ARTHROPATHY
     Route: 058
     Dates: start: 201206, end: 201208
  2. HUMIRA [Suspect]
     Route: 058
     Dates: start: 201208, end: 201209

REACTIONS (6)
  - Drug ineffective [Not Recovered/Not Resolved]
  - Lupus-like syndrome [Recovering/Resolving]
  - Chest pain [Not Recovered/Not Resolved]
  - Pyrexia [Not Recovered/Not Resolved]
  - Swelling [Recovering/Resolving]
  - Pain in extremity [Recovering/Resolving]
